FAERS Safety Report 4929479-3 (Version None)
Quarter: 2006Q1

REPORT INFORMATION
  Report Type: 
  Country: None (occurrence: None)
  Receive Date: 20060301
  Receipt Date: 20060214
  Transmission Date: 20060701
  Serious: Yes (Hospitalization)
  Sender: FDA-Public Use
  Company Number: JP-BOEHRINGER INGELHEIM PHARMACEUTICALS, INC.-2006-BP-01900YA

PATIENT
  Age: 84 Year
  Sex: Male

DRUGS (4)
  1. HARNAL [Suspect]
     Indication: BENIGN PROSTATIC HYPERPLASIA
     Route: 048
     Dates: start: 20050711, end: 20051220
  2. DANTRIUM [Suspect]
     Route: 048
  3. ACECOL [Concomitant]
     Route: 048
     Dates: start: 20051119, end: 20051220
  4. SG (ISOPROPYLANTIPYRINE) [Concomitant]

REACTIONS (2)
  - LIVER DISORDER [None]
  - RENAL DISORDER [None]
